FAERS Safety Report 21937939 (Version 1)
Quarter: 2023Q1

REPORT INFORMATION
  Report Type: Spontaneous
  Country: NZ (occurrence: NZ)
  Receive Date: 20230201
  Receipt Date: 20230201
  Transmission Date: 20230418
  Serious: Yes (Hospitalization)
  Sender: FDA-Public Use
  Company Number: NZ-MYLANLABS-2022M1132340

PATIENT
  Sex: Male

DRUGS (2)
  1. CLOZARIL [Suspect]
     Active Substance: CLOZAPINE
     Indication: Product used for unknown indication
     Dosage: UNK
     Route: 065
  2. CLOZARIL [Suspect]
     Active Substance: CLOZAPINE
     Dosage: UNK (REDUCED)
     Route: 065

REACTIONS (4)
  - Hospitalisation [Recovered/Resolved]
  - Antipsychotic drug level increased [Recovered/Resolved]
  - Neutrophil count decreased [Recovered/Resolved]
  - Wrong technique in product usage process [Unknown]
